FAERS Safety Report 6947604-X (Version None)
Quarter: 2010Q3

REPORT INFORMATION
  Report Type: 
  Country: None (occurrence: None)
  Receive Date: 20100828
  Receipt Date: 20090922
  Transmission Date: 20110219
  Serious: No
  Sender: FDA-Public Use
  Company Number: US-ABBOTT-09P-163-0599157-00

PATIENT
  Sex: Female

DRUGS (19)
  1. NIASPAN [Suspect]
     Indication: BLOOD TRIGLYCERIDES INCREASED
     Dates: start: 20090828
  2. NIASPAN [Suspect]
     Indication: BLOOD CHOLESTEROL INCREASED
  3. NEURONTIN [Concomitant]
     Indication: DIABETIC NEUROPATHY
  4. LIPITOR [Concomitant]
     Indication: PRODUCT USED FOR UNKNOWN INDICATION
  5. ISOSORBIDE [Concomitant]
     Indication: HYPERTENSION
  6. ISOSORBIDE [Concomitant]
     Indication: HEART RATE INCREASED
  7. ASPIRIN [Concomitant]
     Indication: PRODUCT USED FOR UNKNOWN INDICATION
  8. ATIVAN [Concomitant]
     Indication: PRODUCT USED FOR UNKNOWN INDICATION
  9. BENAZEPRIL HYDROCHLORIDE [Concomitant]
     Indication: HYPERTENSION
  10. LOVAZA [Concomitant]
     Indication: PRODUCT USED FOR UNKNOWN INDICATION
  11. HYDROCODONE BITARTRATE [Concomitant]
     Indication: PAIN
  12. LANTUS [Concomitant]
     Indication: DIABETES MELLITUS
  13. KLOR-CON [Concomitant]
     Indication: PRODUCT USED FOR UNKNOWN INDICATION
  14. LASIX [Concomitant]
     Indication: PROPHYLAXIS
  15. LASIX [Concomitant]
     Indication: FLUID RETENTION
  16. NITROSTAT [Concomitant]
     Indication: CHEST PAIN
  17. TOPROL-XL [Concomitant]
     Indication: HYPERTENSION
  18. ZOLOFT [Concomitant]
     Indication: PROPHYLAXIS
  19. ZOLOFT [Concomitant]
     Indication: DEPRESSION

REACTIONS (3)
  - FLUSHING [None]
  - POLLAKIURIA [None]
  - PRURITUS [None]
